FAERS Safety Report 6187146-5 (Version None)
Quarter: 2009Q2

REPORT INFORMATION
  Report Type: 
  Country: None (occurrence: None)
  Receive Date: 20090512
  Receipt Date: 20090504
  Transmission Date: 20091009
  Serious: Yes (Hospitalization)
  Sender: FDA-Public Use
  Company Number: FR-BAYER-200920104GPV

PATIENT
  Age: 55 Year
  Sex: Male

DRUGS (3)
  1. FLUDARA [Suspect]
     Indication: ALLOGENIC BONE MARROW TRANSPLANTATION THERAPY
     Route: 042
     Dates: start: 20090309
  2. BUSILVEX [Suspect]
     Indication: ALLOGENIC BONE MARROW TRANSPLANTATION THERAPY
     Route: 042
     Dates: start: 20090309
  3. ANTILYMPHOCYTE SERUM [Concomitant]

REACTIONS (5)
  - EYE DISORDER [None]
  - GRAFT VERSUS HOST DISEASE [None]
  - MUCOSAL ULCERATION [None]
  - RASH PAPULAR [None]
  - STEVENS-JOHNSON SYNDROME [None]
